FAERS Safety Report 5885028-7 (Version None)
Quarter: 2008Q3

REPORT INFORMATION
  Report Type: 
  Country: None (occurrence: None)
  Receive Date: 20080915
  Receipt Date: 20080915
  Transmission Date: 20090109
  Serious: Yes (Life-Threatening)
  Sender: FDA-Public Use
  Company Number: None

PATIENT
  Age: 72 Year
  Sex: Male
  Weight: 76.2043 kg

DRUGS (1)
  1. TRILEPTAL [Suspect]

REACTIONS (13)
  - ALTERED STATE OF CONSCIOUSNESS [None]
  - AMNESIA [None]
  - BLOOD PRESSURE FLUCTUATION [None]
  - BLOOD PRESSURE INCREASED [None]
  - DEPRESSION [None]
  - DIARRHOEA [None]
  - DISCOMFORT [None]
  - GAIT DISTURBANCE [None]
  - HEAD DISCOMFORT [None]
  - INSOMNIA [None]
  - SOMNOLENCE [None]
  - VISION BLURRED [None]
  - WALKING DISABILITY [None]
